FAERS Safety Report 14010563 (Version 13)
Quarter: 2019Q3

REPORT INFORMATION
  Report Type: Report from Study
  Country: IT (occurrence: IT)
  Receive Date: 20170926
  Receipt Date: 20190910
  Transmission Date: 20191004
  Serious: Yes (Life-Threatening, Hospitalization)
  Sender: FDA-Public Use
  Company Number: IT-ROCHE-1972274

PATIENT
  Age: 44 Year
  Sex: Female
  Weight: 45 kg

DRUGS (119)
  1. PLACEBO [Suspect]
     Active Substance: UNSPECIFIED INGREDIENT
     Indication: RELAPSING-REMITTING MULTIPLE SCLEROSIS
     Route: 058
     Dates: start: 20130117
  2. PARACETAMOL [Concomitant]
     Active Substance: ACETAMINOPHEN
     Indication: PYREXIA
     Dosage: RECEIVED ON 17/JAN/2013, 01/FEB/2013, 05/JUL/2013, 17/DEC/2013, 19/JUN/2014, 01/DEC/2014, 15/DEC/201
     Route: 065
  3. METHYLPREDNISOLONE. [Concomitant]
     Active Substance: METHYLPREDNISOLONE
     Route: 065
     Dates: start: 20130705, end: 20130705
  4. OMEPRAZEN [OMEPRAZOLE] [Concomitant]
     Active Substance: OMEPRAZOLE
     Route: 065
     Dates: start: 201211, end: 20170809
  5. ABASAGLAR [Concomitant]
     Active Substance: INSULIN GLARGINE
     Route: 065
     Dates: start: 20170810
  6. TACROLIMUS. [Concomitant]
     Active Substance: TACROLIMUS
     Route: 065
     Dates: start: 20180131
  7. CITOFOLIN [Concomitant]
     Route: 065
     Dates: start: 20180130, end: 20190124
  8. PIPERACILLIN/TAZOBACTAM [Concomitant]
     Active Substance: PIPERACILLIN SODIUM\TAZOBACTAM SODIUM
     Route: 065
     Dates: start: 20170803, end: 20170803
  9. LANTUS [Concomitant]
     Active Substance: INSULIN GLARGINE
     Route: 065
     Dates: start: 20171223, end: 201801
  10. CARDIAZOL-PARACODINA [Concomitant]
     Active Substance: DIHYDROCODEINE\PENTETRAZOL
     Dosage: 10 DROP
     Route: 065
     Dates: start: 20180110, end: 20180110
  11. OMEPRAZOLE. [Concomitant]
     Active Substance: OMEPRAZOLE
     Indication: HIATUS HERNIA
     Route: 065
     Dates: start: 201211
  12. CHLORPHENAMINE [Concomitant]
     Active Substance: CHLORPHENIRAMINE MALEATE
     Route: 065
     Dates: start: 20130201
  13. CHLORPHENAMINE [Concomitant]
     Active Substance: CHLORPHENIRAMINE MALEATE
     Route: 065
     Dates: start: 20130705
  14. METHYLPREDNISOLONE. [Concomitant]
     Active Substance: METHYLPREDNISOLONE
     Route: 065
     Dates: start: 20130117, end: 20130117
  15. METHYLPREDNISOLONE. [Concomitant]
     Active Substance: METHYLPREDNISOLONE
     Route: 065
     Dates: start: 20131217, end: 20131217
  16. METHYLPREDNISOLONE. [Concomitant]
     Active Substance: METHYLPREDNISOLONE
     Route: 065
     Dates: start: 20170324, end: 20170324
  17. METOCLOPRAMIDE. [Concomitant]
     Active Substance: METOCLOPRAMIDE
     Indication: VOMITING
     Route: 065
     Dates: start: 20170728, end: 2017
  18. CARDIOASPIRINA [Concomitant]
     Active Substance: ASPIRIN
     Route: 065
     Dates: start: 20170810
  19. HUMALOG [Concomitant]
     Active Substance: INSULIN LISPRO
     Indication: DIABETES MELLITUS
     Route: 065
     Dates: start: 20170801, end: 20180130
  20. LAMIVUDINA [Concomitant]
     Active Substance: LAMIVUDINE
     Route: 065
     Dates: start: 20171227
  21. GABAPENTIN. [Concomitant]
     Active Substance: GABAPENTIN
     Indication: DYSAESTHESIA
     Route: 065
     Dates: start: 20180130
  22. VANCOMICINA [VANCOMYCIN] [Concomitant]
     Active Substance: VANCOMYCIN
     Indication: SEPSIS
     Route: 065
     Dates: start: 20180109, end: 20180110
  23. VANCOMICINA [VANCOMYCIN] [Concomitant]
     Active Substance: VANCOMYCIN
     Route: 065
     Dates: start: 20180119, end: 20180122
  24. FUROSEMIDE. [Concomitant]
     Active Substance: FUROSEMIDE
     Route: 065
     Dates: start: 201708, end: 201708
  25. LEVOFLOXACIN. [Concomitant]
     Active Substance: LEVOFLOXACIN
     Indication: INFLUENZA LIKE ILLNESS
     Route: 065
     Dates: start: 201712, end: 201712
  26. CEFTOBIPROLE [Concomitant]
     Active Substance: CEFTOBIPROLE
     Indication: SEPSIS
     Route: 065
     Dates: start: 20180111, end: 20180111
  27. VOLTAREN [DICLOFENAC] [Concomitant]
     Active Substance: DICLOFENAC SODIUM
     Route: 065
     Dates: start: 20140203, end: 20140205
  28. CODEX [SACCHAROMYCES BOULARDII] [Concomitant]
     Indication: PROPHYLAXIS
     Route: 065
     Dates: start: 20180607, end: 20181024
  29. PARACETAMOL [Concomitant]
     Active Substance: ACETAMINOPHEN
     Indication: HEADACHE
     Route: 065
     Dates: start: 20150216
  30. METHYLPREDNISOLONE. [Concomitant]
     Active Substance: METHYLPREDNISOLONE
     Route: 065
     Dates: start: 20141215, end: 20141215
  31. METHYLPREDNISOLONE. [Concomitant]
     Active Substance: METHYLPREDNISOLONE
     Route: 065
     Dates: start: 20160929, end: 20160929
  32. LYRICA [Concomitant]
     Active Substance: PREGABALIN
     Indication: DYSAESTHESIA
     Route: 065
     Dates: start: 20171001, end: 20181024
  33. CEFTOBIPROLE [Concomitant]
     Active Substance: CEFTOBIPROLE
     Route: 065
     Dates: start: 20180112, end: 20180112
  34. PERFALGAN [Concomitant]
     Active Substance: ACETAMINOPHEN
     Route: 065
     Dates: start: 20180108, end: 20180108
  35. PERFALGAN [Concomitant]
     Active Substance: ACETAMINOPHEN
     Route: 065
     Dates: start: 20180118, end: 20180118
  36. PANTOPRAZOLE [Concomitant]
     Active Substance: PANTOPRAZOLE
     Route: 065
     Dates: start: 20180109, end: 20180109
  37. PRIMOLUT [HYDROXYPROGESTERONE CAPROATE] [Concomitant]
     Route: 065
     Dates: start: 20180921, end: 20190107
  38. CHLORPHENAMINE [Concomitant]
     Active Substance: CHLORPHENIRAMINE MALEATE
     Route: 065
     Dates: start: 20160422
  39. METHYLPREDNISOLONE. [Concomitant]
     Active Substance: METHYLPREDNISOLONE
     Route: 065
     Dates: start: 20140619, end: 20140619
  40. DEURSIL [Concomitant]
     Active Substance: URSODIOL
     Route: 065
     Dates: start: 20170810
  41. PIPERACILLIN/TAZOBACTAM [Concomitant]
     Active Substance: PIPERACILLIN SODIUM\TAZOBACTAM SODIUM
     Route: 065
     Dates: start: 20180108, end: 20180109
  42. PIPERACILLIN/TAZOBACTAM [Concomitant]
     Active Substance: PIPERACILLIN SODIUM\TAZOBACTAM SODIUM
     Route: 065
     Dates: start: 20180110, end: 20180110
  43. PERFALGAN [Concomitant]
     Active Substance: ACETAMINOPHEN
     Route: 065
     Dates: start: 20180121, end: 20180121
  44. PERFALGAN [Concomitant]
     Active Substance: ACETAMINOPHEN
     Route: 065
     Dates: start: 20171218, end: 20171218
  45. IBUPROFENE [Concomitant]
     Active Substance: IBUPROFEN
     Route: 065
     Dates: start: 20180113, end: 20180113
  46. TAMIFLU [Concomitant]
     Active Substance: OSELTAMIVIR PHOSPHATE
     Route: 065
     Dates: start: 20180119, end: 20180121
  47. VOLTAREN [DICLOFENAC] [Concomitant]
     Active Substance: DICLOFENAC SODIUM
     Route: 065
     Dates: start: 20170802, end: 20170802
  48. ZANTAC [Concomitant]
     Active Substance: RANITIDINE HYDROCHLORIDE
     Route: 065
     Dates: start: 20170802, end: 20170802
  49. ACETYLCYSTEINE. [Concomitant]
     Active Substance: ACETYLCYSTEINE
     Route: 065
     Dates: start: 20170803, end: 20170804
  50. NORETHISTERONE [Concomitant]
     Active Substance: NORETHINDRONE
     Indication: METRORRHAGIA
     Route: 065
     Dates: start: 201804, end: 201805
  51. CIPROFLOXACINA [CIPROFLOXACIN] [Concomitant]
     Active Substance: CIPROFLOXACIN
     Indication: URINARY TRACT INFECTION
     Route: 065
     Dates: start: 201901, end: 201901
  52. CHLORPHENAMINE [Concomitant]
     Active Substance: CHLORPHENIRAMINE MALEATE
     Route: 065
     Dates: start: 20130117
  53. CHLORPHENAMINE [Concomitant]
     Active Substance: CHLORPHENIRAMINE MALEATE
     Route: 065
     Dates: start: 20131217
  54. CHLORPHENAMINE [Concomitant]
     Active Substance: CHLORPHENIRAMINE MALEATE
     Route: 065
     Dates: start: 20150519
  55. CHLORPHENAMINE [Concomitant]
     Active Substance: CHLORPHENIRAMINE MALEATE
     Route: 065
     Dates: start: 20151029
  56. CHLORPHENAMINE [Concomitant]
     Active Substance: CHLORPHENIRAMINE MALEATE
     Route: 065
     Dates: start: 20170324
  57. METHYLPREDNISOLONE. [Concomitant]
     Active Substance: METHYLPREDNISOLONE
     Route: 065
     Dates: start: 20150519, end: 20150519
  58. CARVEDILOL. [Concomitant]
     Active Substance: CARVEDILOL
     Indication: HYPERTENSION
     Route: 065
     Dates: start: 20170810
  59. LAMIVUDINA [Concomitant]
     Active Substance: LAMIVUDINE
     Indication: CHRONIC HEPATITIS B
     Route: 065
     Dates: start: 20170810, end: 20171223
  60. TACROLIMUS. [Concomitant]
     Active Substance: TACROLIMUS
     Route: 065
     Dates: start: 20170810
  61. TACROLIMUS. [Concomitant]
     Active Substance: TACROLIMUS
     Route: 065
     Dates: start: 20180607, end: 20181004
  62. BACTRIM [Concomitant]
     Active Substance: SULFAMETHOXAZOLE\TRIMETHOPRIM
     Route: 065
     Dates: start: 20180130
  63. MINESSE [Concomitant]
     Active Substance: ETHINYL ESTRADIOL\GESTODENE
     Dosage: 1 TABLET
     Route: 065
     Dates: start: 20121219, end: 20141126
  64. VANCOMICINA [VANCOMYCIN] [Concomitant]
     Active Substance: VANCOMYCIN
     Route: 065
     Dates: start: 20180110, end: 20180112
  65. ERTAPENEM. [Concomitant]
     Active Substance: ERTAPENEM SODIUM
     Route: 065
     Dates: start: 201708, end: 201708
  66. MYCOPHENOLATE MOFETIL. [Concomitant]
     Active Substance: MYCOPHENOLATE MOFETIL
     Route: 065
     Dates: start: 201708, end: 201708
  67. ADRENALIN (EPINEPHRINE) [Concomitant]
     Active Substance: EPINEPHRINE
     Route: 065
     Dates: start: 20170809, end: 20170809
  68. NORADRENALINE [NOREPINEPHRINE] [Concomitant]
     Active Substance: NOREPINEPHRINE
     Route: 065
     Dates: start: 20170809, end: 20170809
  69. LEVOFLOXACIN. [Concomitant]
     Active Substance: LEVOFLOXACIN
     Route: 065
     Dates: start: 20171218, end: 20171218
  70. LANTUS [Concomitant]
     Active Substance: INSULIN GLARGINE
     Route: 065
     Dates: start: 20180105
  71. LIMICAN [Concomitant]
     Active Substance: ALIZAPRIDE HYDROCHLORIDE
     Route: 065
     Dates: start: 20180107, end: 20180107
  72. IBUPROFENE [Concomitant]
     Active Substance: IBUPROFEN
     Route: 065
     Dates: start: 20180108, end: 20180112
  73. SODIUM BICARBONATE. [Concomitant]
     Active Substance: SODIUM BICARBONATE
     Route: 065
     Dates: start: 20180607
  74. OCRELIZUMAB. [Suspect]
     Active Substance: OCRELIZUMAB
     Indication: RELAPSING-REMITTING MULTIPLE SCLEROSIS
     Dosage: DAYS 1 AND 15 OF FIRST 24 WEEK CYCLE FOLLOWED BY DAY 1 OF EACH SUBSEQUENT 24 WEEK CYCLE AS PER PROTO
     Route: 042
     Dates: start: 20130117, end: 20140619
  75. CHLORPHENAMINE [Concomitant]
     Active Substance: CHLORPHENIRAMINE MALEATE
     Dosage: OLE:OPEN LABEL OCRELIZUMAB
     Route: 065
     Dates: start: 20141201
  76. METHYLPREDNISOLONE. [Concomitant]
     Active Substance: METHYLPREDNISOLONE
     Route: 065
     Dates: start: 20160422, end: 20160422
  77. RIFAXIMINE [Concomitant]
     Active Substance: RIFAXIMIN
     Route: 065
     Dates: start: 20170715, end: 20170724
  78. PIPERACILLIN/TAZOBACTAM [Concomitant]
     Active Substance: PIPERACILLIN SODIUM\TAZOBACTAM SODIUM
     Indication: SEPSIS
     Dosage: 1 TABLET
     Route: 065
     Dates: start: 20180107, end: 201801
  79. PIPERACILLIN/TAZOBACTAM [Concomitant]
     Active Substance: PIPERACILLIN SODIUM\TAZOBACTAM SODIUM
     Route: 065
     Dates: start: 20180111, end: 20180111
  80. PIPERACILLIN/TAZOBACTAM [Concomitant]
     Active Substance: PIPERACILLIN SODIUM\TAZOBACTAM SODIUM
     Route: 065
     Dates: start: 20170804, end: 20170804
  81. VANCOMICINA [VANCOMYCIN] [Concomitant]
     Active Substance: VANCOMYCIN
     Route: 065
     Dates: start: 20180113, end: 20180118
  82. DAPTOMICINA [Concomitant]
     Active Substance: DAPTOMYCIN
     Route: 065
     Dates: start: 201708, end: 201708
  83. MEROPENEM. [Concomitant]
     Active Substance: MEROPENEM
     Route: 065
     Dates: start: 201708, end: 201708
  84. SIMULECT [Concomitant]
     Active Substance: BASILIXIMAB
     Route: 065
     Dates: start: 201708, end: 201708
  85. LANTUS [Concomitant]
     Active Substance: INSULIN GLARGINE
     Route: 065
     Dates: start: 201712, end: 20171222
  86. BLOOD [Concomitant]
     Active Substance: WHOLE BLOOD
     Route: 065
     Dates: start: 20170805, end: 20170805
  87. BLOOD [Concomitant]
     Active Substance: WHOLE BLOOD
     Route: 065
     Dates: start: 20170804, end: 20170804
  88. CEFTOBIPROLE [Concomitant]
     Active Substance: CEFTOBIPROLE
     Route: 065
     Dates: start: 20180121, end: 20180121
  89. PERFALGAN [Concomitant]
     Active Substance: ACETAMINOPHEN
     Route: 065
     Dates: start: 20180107, end: 20180107
  90. TAMIFLU [Concomitant]
     Active Substance: OSELTAMIVIR PHOSPHATE
     Route: 065
     Dates: start: 20180123, end: 20180124
  91. PROMETRIUM [Concomitant]
     Active Substance: PROGESTERONE
     Route: 065
     Dates: start: 20180528, end: 20180709
  92. EVEROLIMUS. [Concomitant]
     Active Substance: EVEROLIMUS
     Route: 065
     Dates: start: 20190124
  93. OCRELIZUMAB. [Suspect]
     Active Substance: OCRELIZUMAB
     Indication: RELAPSING-REMITTING MULTIPLE SCLEROSIS
     Dosage: DAYS 1 AND 15 OF FIRST 24 WEEK CYCLE FOLLOWED BY DAY 1 OF EACH SUBSEQUENT 24 WEEK CYCLE AS PER PROTO
     Route: 042
     Dates: start: 20141201, end: 20171120
  94. CHLORPHENAMINE [Concomitant]
     Active Substance: CHLORPHENIRAMINE MALEATE
     Route: 065
     Dates: start: 20141215
  95. METHYLPREDNISOLONE. [Concomitant]
     Active Substance: METHYLPREDNISOLONE
     Dosage: OLE: OPEN LABEL OCELIZUMAB
     Route: 065
     Dates: start: 20141201, end: 20141201
  96. METHYLPREDNISOLONE. [Concomitant]
     Active Substance: METHYLPREDNISOLONE
     Route: 065
     Dates: start: 20151029, end: 20151029
  97. MUCOSYTE [Concomitant]
     Route: 065
     Dates: start: 201708, end: 201708
  98. FIBRINOGEN [Concomitant]
     Active Substance: FIBRINOGEN HUMAN
     Route: 065
     Dates: start: 20170809, end: 20170809
  99. LANTUS [Concomitant]
     Active Substance: INSULIN GLARGINE
     Indication: DIABETES MELLITUS
     Route: 065
     Dates: start: 20180105, end: 20181024
  100. LANTUS [Concomitant]
     Active Substance: INSULIN GLARGINE
     Route: 065
     Dates: start: 20170810, end: 201712
  101. BLOOD [Concomitant]
     Active Substance: WHOLE BLOOD
     Route: 065
     Dates: start: 20170806, end: 20170806
  102. NOVALGINA [Concomitant]
     Active Substance: METAMIZOLE SODIUM
     Route: 065
     Dates: start: 20170802, end: 20170802
  103. EVEROLIMUS. [Concomitant]
     Active Substance: EVEROLIMUS
     Indication: LIVER TRANSPLANT
     Route: 065
     Dates: start: 201802
  104. EVEROLIMUS. [Concomitant]
     Active Substance: EVEROLIMUS
     Route: 065
     Dates: start: 20181005, end: 20190123
  105. EVEROLIMUS. [Concomitant]
     Active Substance: EVEROLIMUS
     Route: 065
     Dates: start: 20190124
  106. PLACEBO [Suspect]
     Active Substance: UNSPECIFIED INGREDIENT
     Dosage: MOST RECENT DOSE RECEIVED ON 29/NOV/2014
     Route: 058
     Dates: start: 20141122
  107. CHLORPHENAMINE [Concomitant]
     Active Substance: CHLORPHENIRAMINE MALEATE
     Route: 065
     Dates: start: 20140619
  108. CHLORPHENAMINE [Concomitant]
     Active Substance: CHLORPHENIRAMINE MALEATE
     Route: 065
     Dates: start: 20160929
  109. CHLORPHENAMINE [Concomitant]
     Active Substance: CHLORPHENIRAMINE MALEATE
     Route: 065
     Dates: start: 20180121, end: 20180121
  110. METHYLPREDNISOLONE. [Concomitant]
     Active Substance: METHYLPREDNISOLONE
     Route: 065
     Dates: start: 20130201, end: 20130201
  111. RABEPRAZOLO [Concomitant]
     Route: 065
     Dates: start: 20170810
  112. TACROLIMUS. [Concomitant]
     Active Substance: TACROLIMUS
     Route: 065
     Dates: start: 20180131
  113. TACROLIMUS. [Concomitant]
     Active Substance: TACROLIMUS
     Route: 065
     Dates: start: 20181005
  114. GABAPENTIN. [Concomitant]
     Active Substance: GABAPENTIN
     Dosage: AND 1 MG
     Route: 065
     Dates: start: 20180131
  115. CIPROFLOXACINA [CIPROFLOXACIN] [Concomitant]
     Active Substance: CIPROFLOXACIN
     Route: 065
     Dates: start: 201708, end: 201708
  116. LANSOPRAZOLE. [Concomitant]
     Active Substance: LANSOPRAZOLE
     Route: 065
     Dates: start: 20170801, end: 20170804
  117. KONAKION [Concomitant]
     Active Substance: PHYTONADIONE
     Route: 065
     Dates: start: 20170803, end: 20170804
  118. CHLORHEXIDINE [Concomitant]
     Active Substance: CHLORHEXIDINE
     Indication: APHTHOUS ULCER
     Dosage: 1 RINSE
     Route: 065
     Dates: start: 20180717
  119. AMITRIPTILINA [AMITRIPTYLINE] [Concomitant]
     Indication: HEADACHE
     Dosage: 1 DROP
     Route: 065
     Dates: start: 20190124

REACTIONS (1)
  - Hepatitis fulminant [Recovered/Resolved with Sequelae]

NARRATIVE: CASE EVENT DATE: 20170715
